FAERS Safety Report 25213894 (Version 1)
Quarter: 2025Q2

REPORT INFORMATION
  Report Type: Spontaneous
  Country: US (occurrence: US)
  Receive Date: 20250418
  Receipt Date: 20250418
  Transmission Date: 20250716
  Serious: No
  Sender: GLAND PHARMA LTD
  Company Number: US-GLANDPHARMA-US-2025GLNSPO00953

PATIENT
  Age: 46 Year
  Sex: Female

DRUGS (3)
  1. TRANEXAMIC ACID [Suspect]
     Active Substance: TRANEXAMIC ACID
     Indication: Drug ineffective for unapproved indication
     Route: 065
  2. LUPRON [Concomitant]
     Active Substance: LEUPROLIDE ACETATE
     Route: 065
  3. SLYND [Concomitant]
     Active Substance: DROSPIRENONE
     Route: 065

REACTIONS (1)
  - Drug ineffective for unapproved indication [Unknown]
